FAERS Safety Report 9541330 (Version 1)
Quarter: 2013Q3

REPORT INFORMATION
  Report Type: Spontaneous
  Country: SE (occurrence: SE)
  Receive Date: 20130923
  Receipt Date: 20130923
  Transmission Date: 20140515
  Serious: Yes (Other)
  Sender: FDA-Public Use
  Company Number: SE-JNJFOC-20130906980

PATIENT
  Age: 3 Decade
  Sex: Female

DRUGS (7)
  1. REMICADE [Suspect]
     Indication: RHEUMATOID ARTHRITIS
     Route: 042
     Dates: start: 201203
  2. ISOPTO-MAXIDEX [Concomitant]
     Route: 065
  3. TIMOSAN [Concomitant]
     Route: 065
  4. CYCLOGYL [Concomitant]
     Route: 065
  5. ONDANSETRON [Concomitant]
     Route: 065
  6. FOLACIN [Concomitant]
     Route: 065
  7. METOJECT [Concomitant]
     Route: 065

REACTIONS (2)
  - Syncope [Recovered/Resolved]
  - Hypotension [Recovered/Resolved]
